FAERS Safety Report 5564681-1 (Version None)
Quarter: 2007Q4

REPORT INFORMATION
  Report Type: 
  Country: None (occurrence: None)
  Receive Date: 20071212
  Receipt Date: 20071125
  Transmission Date: 20080405
  Serious: Yes (Death)
  Sender: FDA-Public Use
  Company Number: T07-GER-05675-01

PATIENT
  Age: 84 Year
  Sex: Female

DRUGS (8)
  1. MEMANTINE HCL [Suspect]
     Indication: DEMENTIA
     Dates: start: 20070815
  2. ENALAPRIL [Concomitant]
  3. METOPROLOL [Concomitant]
  4. DIHYDRALAZINE SULFATE [Concomitant]
  5. XIPAMIDE [Concomitant]
  6. SIMVASTATIN [Concomitant]
  7. ACETYLSALICYLIC ACID SRT [Concomitant]
  8. LEVODOPA [Concomitant]

REACTIONS (14)
  - FALL [None]
  - HEAD INJURY [None]
  - HYPERTENSIVE HEART DISEASE [None]
  - INTRAVENTRICULAR HAEMORRHAGE [None]
  - LOSS OF CONSCIOUSNESS [None]
  - MALIGNANT HYPERTENSION [None]
  - MUSCLE SPASMS [None]
  - RENAL FAILURE [None]
  - SHOCK [None]
  - SUBARACHNOID HAEMORRHAGE [None]
  - SUBDURAL HAEMORRHAGE [None]
  - SYNCOPE [None]
  - TRAUMATIC BRAIN INJURY [None]
  - VERTIGO [None]
